FAERS Safety Report 9156812 (Version 1)
Quarter: 2013Q1

REPORT INFORMATION
  Report Type: Spontaneous
  Country: DK (occurrence: None)
  Receive Date: 20130208
  Receipt Date: 20130208
  Transmission Date: 20140127
  Serious: Yes (Other)
  Sender: FDA-Public Use
  Company Number: 2013MA000883

PATIENT
  Sex: Male

DRUGS (7)
  1. MIRTAZAPINE [Suspect]
     Indication: DEPRESSION
     Route: 048
     Dates: start: 20121101, end: 20121114
  2. SERTRALINE HYDROCHLORIDE TABLETS, 100 MG (BASE) (AELLC) (SERTRALINE) [Suspect]
     Indication: DEPRESSION
     Route: 048
     Dates: start: 20120926
  3. RAMIPRIL [Concomitant]
  4. DOMPERIDONE [Concomitant]
  5. CITALOPRAM [Concomitant]
  6. AMITRIPTYLINE [Concomitant]
  7. TRAZODONE [Concomitant]

REACTIONS (3)
  - Serotonin syndrome [None]
  - Therapeutic response decreased [None]
  - Drug interaction [None]
